FAERS Safety Report 12586776 (Version 5)
Quarter: 2017Q1

REPORT INFORMATION
  Report Type: Spontaneous
  Country: US (occurrence: US)
  Receive Date: 20160725
  Receipt Date: 20170117
  Transmission Date: 20170428
  Serious: Yes (Hospitalization, Other)
  Sender: FDA-Public Use
  Company Number: US-PFIZER INC-2016348527

PATIENT
  Age: 77 Year
  Sex: Female

DRUGS (16)
  1. LYRICA [Suspect]
     Active Substance: PREGABALIN
     Indication: NEURALGIA
     Dosage: 150 MG, 2X/DAY
     Route: 048
     Dates: start: 20141006, end: 2015
  2. FUROSEMIDE. [Concomitant]
     Active Substance: FUROSEMIDE
     Indication: SWELLING
     Dosage: 40 MG, DAILY
  3. LYRICA [Suspect]
     Active Substance: PREGABALIN
     Dosage: 150 MG, 2X/DAY
     Route: 048
     Dates: start: 2015
  4. PRAVASTATIN. [Concomitant]
     Active Substance: PRAVASTATIN
     Indication: BLOOD PRESSURE INCREASED
     Dosage: 40 MG, UNK
  5. TRAMADOL. [Concomitant]
     Active Substance: TRAMADOL
     Indication: PAIN
     Dosage: 50 MG, 4X/DAY
  6. LYRICA [Suspect]
     Active Substance: PREGABALIN
     Dosage: 150 MG, 2X/DAY
     Route: 048
  7. METOPROLOL. [Concomitant]
     Active Substance: METOPROLOL
     Dosage: 25 MG, UNK
  8. VITAMIN D [Concomitant]
     Active Substance: CHOLECALCIFEROL
     Dosage: 1000 IU, UNK
     Dates: end: 201610
  9. VITAMIN B12 [Concomitant]
     Active Substance: CYANOCOBALAMIN
     Dosage: 1000 UG, UNK
     Dates: end: 201610
  10. PRAVASTATIN. [Concomitant]
     Active Substance: PRAVASTATIN
     Indication: PERIPHERAL SWELLING
  11. ONE-A-DAY [Concomitant]
     Dosage: 1 DF, DAILY
  12. LYRICA [Suspect]
     Active Substance: PREGABALIN
     Indication: NEUROPATHY PERIPHERAL
     Dosage: UNK
     Route: 048
  13. PLAVIX [Concomitant]
     Active Substance: CLOPIDOGREL BISULFATE
     Indication: CEREBROVASCULAR ACCIDENT
     Dosage: 75 MG, DAILY
  14. PLAVIX [Concomitant]
     Active Substance: CLOPIDOGREL BISULFATE
     Indication: ANTICOAGULANT THERAPY
  15. TRIAMTERENE/HYDROCHLORTHIAZIDE [Concomitant]
     Dosage: UNK, DAILY [TRIAMTERENE 75MG]/[HYDROCHLOROTHIAZIDE 50MG]
  16. VITAMIN C [Concomitant]
     Active Substance: ASCORBIC ACID
     Indication: VITAMIN SUPPLEMENTATION
     Dosage: 1200 MG, UNK
     Dates: end: 201610

REACTIONS (11)
  - Limb discomfort [Not Recovered/Not Resolved]
  - Gait disturbance [Not Recovered/Not Resolved]
  - Oedema peripheral [Not Recovered/Not Resolved]
  - Squamous cell carcinoma of lung [Unknown]
  - Neuroendocrine tumour of the lung [Unknown]
  - Condition aggravated [Not Recovered/Not Resolved]
  - Pain [Not Recovered/Not Resolved]
  - Musculoskeletal discomfort [Not Recovered/Not Resolved]
  - Peripheral swelling [Not Recovered/Not Resolved]
  - Joint swelling [Not Recovered/Not Resolved]
  - Weight increased [Not Recovered/Not Resolved]
